FAERS Safety Report 10155436 (Version 1)
Quarter: 2014Q2

REPORT INFORMATION
  Report Type: Spontaneous
  Country: US (occurrence: None)
  Receive Date: 20140421
  Receipt Date: 20140421
  Transmission Date: 20141212
  Serious: No
  Sender: FDA-Public Use
  Company Number: AEGR000030

PATIENT
  Age: 63 Year
  Sex: Female

DRUGS (2)
  1. JUXTAPID [Suspect]
     Indication: TYPE IIA HYPERLIPIDAEMIA
     Route: 048
     Dates: start: 20130309
  2. OMEGA 3 FISH OIL (FISH OIL) [Concomitant]

REACTIONS (1)
  - Diarrhoea [None]
